FAERS Safety Report 13303426 (Version 2)
Quarter: 2017Q1

REPORT INFORMATION
  Report Type: Spontaneous
  Country: SE (occurrence: SE)
  Receive Date: 20170307
  Receipt Date: 20170316
  Transmission Date: 20170428
  Serious: Yes (Life-Threatening)
  Sender: FDA-Public Use
  Company Number: SE-BAYER-2017-039537

PATIENT
  Age: 30 Year
  Sex: Female
  Weight: 49 kg

DRUGS (1)
  1. MIRENA [Suspect]
     Active Substance: LEVONORGESTREL
     Dosage: 20 MCG/24HR, CONT
     Route: 015
     Dates: start: 201411

REACTIONS (7)
  - Depression [Not Recovered/Not Resolved]
  - Dyspareunia [Unknown]
  - Fatigue [Unknown]
  - Dizziness [Unknown]
  - Paraesthesia [Unknown]
  - Weight decreased [Unknown]
  - Coital bleeding [Unknown]

NARRATIVE: CASE EVENT DATE: 201411
